FAERS Safety Report 6278230-6 (Version None)
Quarter: 2009Q3

REPORT INFORMATION
  Report Type: 
  Country: None (occurrence: None)
  Receive Date: 20090722
  Receipt Date: 20090720
  Transmission Date: 20100115
  Serious: No
  Sender: FDA-Public Use
  Company Number: US-B.I. PHARMACEUTICALS,INC./RIDGEFIELD-2009-BP-08069BP

PATIENT
  Sex: Female

DRUGS (3)
  1. COMBIVENT [Suspect]
     Indication: ASTHMA
     Dosage: 4 PUF
     Route: 055
     Dates: start: 20090624, end: 20090624
  2. COMBIVENT [Suspect]
     Indication: COUGH
  3. YAZ [Concomitant]

REACTIONS (4)
  - FEAR [None]
  - FEELING ABNORMAL [None]
  - PALPITATIONS [None]
  - TACHYCARDIA [None]
